FAERS Safety Report 19025950 (Version 1)
Quarter: 2021Q1

REPORT INFORMATION
  Report Type: Spontaneous
  Country: US (occurrence: US)
  Receive Date: 20210316
  Receipt Date: 20210316
  Transmission Date: 20210420
  Serious: Yes (Hospitalization)
  Sender: FDA-Public Use
  Company Number: None

PATIENT
  Age: 88 Year
  Sex: Male
  Weight: 58.51 kg

DRUGS (2)
  1. AMIODARONE [Suspect]
     Active Substance: AMIODARONE
     Indication: ATRIAL FIBRILLATION
     Route: 048
     Dates: start: 20141114, end: 20181109
  2. AMIODARONE [Suspect]
     Active Substance: AMIODARONE
     Indication: MITRAL VALVE INCOMPETENCE
     Route: 048
     Dates: start: 20141114, end: 20181109

REACTIONS (2)
  - Dyspnoea [None]
  - Pulmonary fibrosis [None]

NARRATIVE: CASE EVENT DATE: 20181109
